FAERS Safety Report 6347660-6 (Version None)
Quarter: 2009Q3

REPORT INFORMATION
  Report Type: 
  Country: None (occurrence: None)
  Receive Date: 20090910
  Receipt Date: 20090903
  Transmission Date: 20100115
  Serious: Yes (Other)
  Sender: FDA-Public Use
  Company Number: NO-MERCK-0909NOR00008

PATIENT
  Age: 19 Month
  Sex: Female
  Weight: 11 kg

DRUGS (3)
  1. SINGULAIR [Suspect]
     Indication: ASTHMA
     Route: 048
     Dates: start: 20081125, end: 20090126
  2. ALBUTEROL SULFATE [Concomitant]
     Indication: ASTHMA
  3. FLUTICASONE PROPIONATE [Concomitant]
     Indication: ASTHMA
     Route: 065

REACTIONS (4)
  - DIARRHOEA [None]
  - EPISTAXIS [None]
  - PURPURA [None]
  - VOMITING [None]
